FAERS Safety Report 8592764-0 (Version None)
Quarter: 2012Q3

REPORT INFORMATION
  Report Type: 
  Country: None (occurrence: None)
  Receive Date: 20120814
  Receipt Date: 20120810
  Transmission Date: 20120928
  Serious: Yes (Hospitalization)
  Sender: FDA-Public Use
  Company Number: DE-ROCHE-1035640

PATIENT
  Age: 77 Year
  Sex: Female
  Weight: 79 kg

DRUGS (2)
  1. ACTEMRA [Suspect]
     Route: 042
     Dates: start: 20111117
  2. ACTEMRA [Suspect]
     Indication: RHEUMATOID ARTHRITIS
     Route: 042
     Dates: start: 20111020, end: 20111117

REACTIONS (3)
  - NECROSIS [None]
  - IMPAIRED HEALING [None]
  - OSTEOARTHRITIS [None]
